FAERS Safety Report 8874142 (Version 1)
Quarter: 2012Q4

REPORT INFORMATION
  Report Type: 
  Country: SI (occurrence: SI)
  Receive Date: 20121023
  Receipt Date: 20121023
  Transmission Date: 20130627
  Serious: Yes (Other)
  Sender: FDA-Public Use
  Company Number: SI-CELGENEUS-261-21880-12101283

PATIENT
  Age: 67 Year
  Sex: Female

DRUGS (3)
  1. REVLIMID [Suspect]
     Indication: AMYLOIDOSIS NOS
     Dosage: 10 Milligram
     Route: 048
     Dates: start: 200904
  2. DEXAMETHASONE [Concomitant]
     Indication: AMYLOIDOSIS NOS
     Route: 065
     Dates: start: 200904
  3. METHYLPREDNISOLONE [Concomitant]
     Indication: AMYLOIDOSIS NOS
     Route: 065

REACTIONS (2)
  - Cervical myelopathy [Unknown]
  - Paraparesis [Unknown]
